FAERS Safety Report 7981939-7 (Version None)
Quarter: 2011Q4

REPORT INFORMATION
  Report Type: 
  Country: None (occurrence: None)
  Receive Date: 20111215
  Receipt Date: 20111213
  Transmission Date: 20120403
  Serious: No
  Sender: FDA-Public Use
  Company Number: CA-BAYER-2011-115503

PATIENT
  Age: 25 Year
  Sex: Female

DRUGS (1)
  1. MIRENA [Suspect]
     Indication: CONTRACEPTION
     Dosage: UNK
     Dates: start: 20101101

REACTIONS (7)
  - PAIN IN EXTREMITY [None]
  - MENORRHAGIA [None]
  - DYSMENORRHOEA [None]
  - ARTHRALGIA [None]
  - MYALGIA [None]
  - METRORRHAGIA [None]
  - LIMB DISCOMFORT [None]
